FAERS Safety Report 20717959 (Version 5)
Quarter: 2022Q3

REPORT INFORMATION
  Report Type: Report from Study
  Country: US (occurrence: US)
  Receive Date: 20220418
  Receipt Date: 20220721
  Transmission Date: 20221026
  Serious: No
  Sender: FDA-Public Use
  Company Number: US-NOVARTISTESTPH-NVSC2022US086659

PATIENT
  Age: 77 Year
  Sex: Female

DRUGS (1)
  1. LEQVIO [Suspect]
     Active Substance: INCLISIRAN SODIUM
     Indication: Product used for unknown indication
     Dosage: UNK
     Route: 058
     Dates: start: 20220324

REACTIONS (10)
  - Sinus disorder [Not Recovered/Not Resolved]
  - Nasal congestion [Recovering/Resolving]
  - Eye disorder [Recovering/Resolving]
  - Fatigue [Recovering/Resolving]
  - Dyspepsia [Recovering/Resolving]
  - Cough [Recovering/Resolving]
  - Arthritis [Recovering/Resolving]
  - Myalgia [Not Recovered/Not Resolved]
  - COVID-19 [Recovering/Resolving]
  - Vertigo [Unknown]

NARRATIVE: CASE EVENT DATE: 20220324
